FAERS Safety Report 21530754 (Version 4)
Quarter: 2025Q4

REPORT INFORMATION
  Report Type: Spontaneous
  Country: US (occurrence: US)
  Receive Date: 20221031
  Receipt Date: 20251117
  Transmission Date: 20260118
  Serious: No
  Sender: PHARMING GROUP
  Company Number: US-PHARMING-PHAUS2022000741

PATIENT

DRUGS (5)
  1. RUCONEST [Suspect]
     Active Substance: CONESTAT ALFA
     Indication: Hereditary angioedema
     Dosage: 2400 IU, AS NEEDED
     Route: 042
     Dates: start: 20220922
  2. RUCONEST [Suspect]
     Active Substance: CONESTAT ALFA
     Dosage: 2400 IU, AS NEEDED
     Route: 042
     Dates: start: 202209
  3. RUCONEST [Suspect]
     Active Substance: CONESTAT ALFA
     Dosage: 2400 IU, PRN
     Route: 042
     Dates: start: 202209
  4. RUCONEST [Suspect]
     Active Substance: CONESTAT ALFA
     Dosage: 2100 IU, PRN
     Route: 042
     Dates: start: 202209
  5. HUMIRA [Concomitant]
     Active Substance: ADALIMUMAB
     Indication: Product used for unknown indication

REACTIONS (2)
  - Weight fluctuation [Unknown]
  - Underdose [Unknown]
